FAERS Safety Report 6932588-0 (Version None)
Quarter: 2010Q3

REPORT INFORMATION
  Report Type: 
  Country: None (occurrence: None)
  Receive Date: 20100817
  Receipt Date: 20100802
  Transmission Date: 20110219
  Serious: Yes (Death, Life-Threatening, Hospitalization, Other)
  Sender: FDA-Public Use
  Company Number: 2010AC000300

PATIENT
  Age: 24 Year
  Sex: Female

DRUGS (8)
  1. DIGOXIN [Suspect]
     Dosage: PO
     Route: 048
     Dates: start: 20060301, end: 20080601
  2. DIGOXIN [Suspect]
     Dosage: 0.125 MG; QOD; PO
     Route: 048
     Dates: end: 20070701
  3. *AZITHROMYCIN [Concomitant]
  4. DOPAMINE HCL [Concomitant]
  5. OXYCODONE [Concomitant]
  6. COMBIVIR [Concomitant]
  7. KALETRA [Concomitant]
  8. OXYGEN [Concomitant]

REACTIONS (19)
  - ANXIETY [None]
  - ASTHENIA [None]
  - BLOOD THYROID STIMULATING HORMONE INCREASED [None]
  - CARDIAC DISORDER [None]
  - CARDIO-RESPIRATORY ARREST [None]
  - CARDIOGENIC SHOCK [None]
  - CARDIOMYOPATHY [None]
  - DEHYDRATION [None]
  - DIARRHOEA [None]
  - ECONOMIC PROBLEM [None]
  - HAEMODIALYSIS [None]
  - MULTIPLE INJURIES [None]
  - PAIN [None]
  - PERICARDIAL EFFUSION [None]
  - PNEUMOCYSTIS JIROVECI PNEUMONIA [None]
  - RENAL FAILURE CHRONIC [None]
  - SEPTIC SHOCK [None]
  - SINUS TACHYCARDIA [None]
  - UNEVALUABLE EVENT [None]
